FAERS Safety Report 7450947-7 (Version None)
Quarter: 2011Q2

REPORT INFORMATION
  Report Type: 
  Country: None (occurrence: None)
  Receive Date: 20110429
  Receipt Date: 20110429
  Transmission Date: 20111010
  Serious: No
  Sender: FDA-Public Use
  Company Number: None

PATIENT
  Age: 24 Year
  Sex: Male
  Weight: 45.3597 kg

DRUGS (1)
  1. TEFLARO [Suspect]
     Indication: PNEUMONIA STAPHYLOCOCCAL
     Dosage: 600MG Q12HRS IV DRIP
     Route: 041
     Dates: start: 20110204, end: 20110304

REACTIONS (8)
  - HEART RATE DECREASED [None]
  - ALTERED STATE OF CONSCIOUSNESS [None]
  - FEELING ABNORMAL [None]
  - RESPIRATORY RATE INCREASED [None]
  - SOMNOLENCE [None]
  - NO THERAPEUTIC RESPONSE [None]
  - DIZZINESS [None]
  - INCORRECT STORAGE OF DRUG [None]
